FAERS Safety Report 7981296 (Version 2)
Quarter: 2012Q4

REPORT INFORMATION
  Report Type: 
  Country: CA (occurrence: CA)
  Receive Date: 20110608
  Receipt Date: 20121106
  Transmission Date: 20130627
  Serious: Yes (Death)
  Sender: FDA-Public Use
  Company Number: PHMT2006CA01025

PATIENT
  Sex: Female

DRUGS (1)
  1. SANDOSTATIN LAR [Suspect]
     Indication: CARCINOID TUMOUR
     Dosage: 20 mg, QMO
     Dates: start: 20060113, end: 20060308

REACTIONS (3)
  - Death [Fatal]
  - Blood pressure decreased [Unknown]
  - Heart rate increased [Unknown]
